FAERS Safety Report 13654699 (Version 1)
Quarter: 2017Q2

REPORT INFORMATION
  Report Type: Report from Study
  Country: ES (occurrence: ES)
  Receive Date: 20170615
  Receipt Date: 20170615
  Transmission Date: 20170830
  Serious: Yes (Hospitalization)
  Sender: FDA-Public Use
  Company Number: ES-VELOXIS PHARMACEUTICALS-2022058

PATIENT
  Age: 67 Year
  Sex: Male
  Weight: 87 kg

DRUGS (1)
  1. ENVARSUS XR [Suspect]
     Active Substance: TACROLIMUS
     Indication: RENAL TRANSPLANT
     Route: 048
     Dates: start: 20161025

REACTIONS (1)
  - Delayed graft function [Recovered/Resolved]
